FAERS Safety Report 9204458 (Version 1)
Quarter: 2013Q2

REPORT INFORMATION
  Report Type: Spontaneous
  Country: US (occurrence: US)
  Receive Date: 20130402
  Receipt Date: 20130402
  Transmission Date: 20140414
  Serious: No
  Sender: FDA-Public Use
  Company Number: US-BAYER-2013-041464

PATIENT
  Age: 57 Year
  Sex: Female
  Weight: 159.64 kg

DRUGS (15)
  1. ALEVE CAPLET [Suspect]
     Indication: ARTHRITIS
     Dosage: 2 DF, BID
     Route: 048
     Dates: start: 2011
  2. ALEVE CAPLET [Suspect]
     Indication: HEADACHE
  3. VERAPAMIL [Concomitant]
  4. SPIRONOLACTONE [Concomitant]
  5. POTASSIUM [Concomitant]
  6. ALIVE MULTI-VITAMIN [Concomitant]
  7. DIGOXIN [Concomitant]
  8. VITAMIN B12 [CYANOCOBALAMIN] [Concomitant]
  9. METOLAZONE [Concomitant]
  10. FISH OIL [Concomitant]
  11. GLIPIZIDE [Concomitant]
  12. PRADAXA [Concomitant]
  13. LASIX [Concomitant]
  14. GABAPENTIN [Concomitant]
  15. METHOCARBAMOL [METHOCARBAMOL] [Concomitant]

REACTIONS (3)
  - Drug ineffective [None]
  - Incorrect drug administration duration [None]
  - Incorrect dose administered [None]
